FAERS Safety Report 24224211 (Version 2)
Quarter: 2024Q3

REPORT INFORMATION
  Report Type: Spontaneous
  Country: AU (occurrence: AU)
  Receive Date: 20240819
  Receipt Date: 20240820
  Transmission Date: 20241017
  Serious: Yes (Death, Hospitalization)
  Sender: JOHNSON AND JOHNSON
  Company Number: AU-JNJFOC-20240831293

PATIENT
  Age: 20 Year
  Sex: Female

DRUGS (5)
  1. ACETAMINOPHEN [Suspect]
     Active Substance: ACETAMINOPHEN
     Indication: Product used for unknown indication
     Dosage: THE PATIENT INGESTED 78 TABLETS IN WHICH PARACETAMOL AT A DOSE OF 13 GRAMS (26 TABLETS)
     Route: 048
     Dates: start: 20190417
  2. VENLAFAXINE HYDROCHLORIDE [Suspect]
     Active Substance: VENLAFAXINE HYDROCHLORIDE
     Indication: Product used for unknown indication
     Route: 048
     Dates: start: 20190417
  3. FLUVOXAMINE MALEATE [Suspect]
     Active Substance: FLUVOXAMINE MALEATE
     Indication: Product used for unknown indication
     Route: 048
     Dates: start: 20190417
  4. FLUOXETINE HYDROCHLORIDE [Suspect]
     Active Substance: FLUOXETINE HYDROCHLORIDE
     Indication: Product used for unknown indication
     Route: 048
     Dates: start: 20190417
  5. IBUPROFEN [Suspect]
     Active Substance: IBUPROFEN
     Indication: Product used for unknown indication
     Route: 048
     Dates: start: 20190417

REACTIONS (3)
  - Brain death [Fatal]
  - Multiple organ dysfunction syndrome [Fatal]
  - Intentional overdose [Fatal]

NARRATIVE: CASE EVENT DATE: 20190417
